FAERS Safety Report 13457538 (Version 7)
Quarter: 2019Q3

REPORT INFORMATION
  Report Type: Report from Study
  Country: US (occurrence: US)
  Receive Date: 20170419
  Receipt Date: 20190918
  Transmission Date: 20191004
  Serious: Yes (Hospitalization, Other)
  Sender: FDA-Public Use
  Company Number: PHHY2015US028899

PATIENT
  Age: 38 Year
  Sex: Female

DRUGS (3)
  1. GILENYA [Suspect]
     Active Substance: FINGOLIMOD HYDROCHLORIDE
     Indication: MULTIPLE SCLEROSIS
     Dosage: UNK, QD
     Route: 048
  2. ELAVIL [Concomitant]
     Active Substance: AMITRIPTYLINE HYDROCHLORIDE
     Indication: MIGRAINE
     Dosage: UNK
     Route: 065
     Dates: start: 20180221
  3. ADVIL [Concomitant]
     Active Substance: IBUPROFEN
     Indication: PAIN IN EXTREMITY
     Dosage: UNK
     Route: 065
     Dates: start: 20160222

REACTIONS (30)
  - Neutrophil count increased [Unknown]
  - Gastrooesophageal reflux disease [Unknown]
  - Pruritus generalised [Unknown]
  - Memory impairment [Unknown]
  - Epistaxis [Unknown]
  - Seasonal allergy [Unknown]
  - Lentigo [Recovered/Resolved]
  - Blood bilirubin decreased [Recovered/Resolved]
  - Dyspepsia [Unknown]
  - Urinary incontinence [Recovered/Resolved]
  - Bronchitis [Recovered/Resolved]
  - Nausea [Recovered/Resolved]
  - Arthralgia [Unknown]
  - Sinusitis [Recovered/Resolved]
  - Constipation [Unknown]
  - Barrett^s oesophagus [Unknown]
  - Ear infection [Recovered/Resolved]
  - Haemangioma [Recovered/Resolved]
  - Vomiting [Recovered/Resolved]
  - Melanocytic naevus [Recovered/Resolved]
  - Vitamin B12 deficiency [Unknown]
  - Alopecia [Unknown]
  - Concomitant disease aggravated [Unknown]
  - Muscle spasms [Unknown]
  - Dizziness [Unknown]
  - Diarrhoea [Recovered/Resolved]
  - Nausea [Recovered/Resolved]
  - Photosensitivity reaction [Recovered/Resolved]
  - Fatigue [Recovered/Resolved]
  - Fall [Recovered/Resolved]

NARRATIVE: CASE EVENT DATE: 20141023
